FAERS Safety Report 4846615-8 (Version None)
Quarter: 2005Q4

REPORT INFORMATION
  Report Type: 
  Country: None (occurrence: None)
  Receive Date: 20051202
  Receipt Date: 20051121
  Transmission Date: 20060501
  Serious: Yes (Other)
  Sender: FDA-Public Use
  Company Number: GXKR2005BR02037

PATIENT
  Age: 54 Year
  Sex: Female
  Weight: 131 kg

DRUGS (3)
  1. CAPTOPRIL [Suspect]
     Indication: HYPERTENSION
     Dosage: 25 MG, TID, ORAL
     Route: 048
  2. MODURETIC 5-50 [Concomitant]
  3. SIMVASTATIN [Concomitant]

REACTIONS (5)
  - BLINDNESS UNILATERAL [None]
  - BLOOD PRESSURE FLUCTUATION [None]
  - CEREBROVASCULAR ACCIDENT [None]
  - LACRIMATION INCREASED [None]
  - OEDEMA PERIPHERAL [None]
